FAERS Safety Report 5670598-4 (Version None)
Quarter: 2008Q1

REPORT INFORMATION
  Report Type: 
  Country: None (occurrence: None)
  Receive Date: 20080318
  Receipt Date: 20080307
  Transmission Date: 20080703
  Serious: Yes (Other)
  Sender: FDA-Public Use
  Company Number: US-JNJFOC-20080203838

PATIENT
  Sex: Female

DRUGS (6)
  1. FENTANYL TRANSDERMAL SYSTEM [Suspect]
     Dosage: 75 UG/HR AND 25 UG/HR PATCHES
     Route: 062
  2. FENTANYL TRANSDERMAL SYSTEM [Suspect]
     Indication: PAIN
     Route: 062
  3. SEROQUEL [Concomitant]
     Route: 065
  4. SEROQUEL [Concomitant]
     Dosage: HALF TO 1 HOUR OF SLEEP
     Route: 065
  5. LYRICA [Concomitant]
     Route: 065
  6. LYRICA [Concomitant]
     Indication: FIBROMYALGIA
     Route: 065

REACTIONS (1)
  - DEPRESSED LEVEL OF CONSCIOUSNESS [None]
